FAERS Safety Report 21232467 (Version 2)
Quarter: 2022Q4

REPORT INFORMATION
  Report Type: Other
  Country: JP (occurrence: JP)
  Receive Date: 20220819
  Receipt Date: 20221102
  Transmission Date: 20230112
  Serious: Yes (Death, Hospitalization, Other)
  Sender: FDA-Public Use
  Company Number: JP-CHUGAI-2022031285

PATIENT
  Age: 67 Year
  Sex: Female
  Weight: 44.2 kg

DRUGS (8)
  1. AVASTIN [Suspect]
     Active Substance: BEVACIZUMAB
     Indication: Rectal cancer
     Route: 041
     Dates: start: 20210405
  2. AVASTIN [Suspect]
     Active Substance: BEVACIZUMAB
     Route: 041
     Dates: start: 20210426, end: 20211129
  3. AVASTIN [Suspect]
     Active Substance: BEVACIZUMAB
     Route: 041
     Dates: end: 20211220
  4. XELODA [Suspect]
     Active Substance: CAPECITABINE
     Indication: Rectal cancer
     Route: 048
     Dates: start: 20210405
  5. XELODA [Suspect]
     Active Substance: CAPECITABINE
     Route: 048
     Dates: start: 20210426, end: 20211212
  6. XELODA [Suspect]
     Active Substance: CAPECITABINE
     Route: 048
     Dates: end: 20211220
  7. OXALIPLATIN [Suspect]
     Active Substance: OXALIPLATIN
     Indication: Rectal cancer
     Dosage: 20/DEC/2021 LAST DOSE
     Route: 041
     Dates: start: 20210405
  8. OXYCODONE HYDROCHLORIDE [Concomitant]
     Active Substance: OXYCODONE HYDROCHLORIDE
     Dosage: UNK
     Route: 048

REACTIONS (6)
  - Rectal cancer [Fatal]
  - Gastrointestinal perforation [Recovering/Resolving]
  - Mucosal disorder [Unknown]
  - Neuropathy peripheral [Not Recovered/Not Resolved]
  - Haemophagocytic lymphohistiocytosis [Recovering/Resolving]
  - Faeces hard [Unknown]

NARRATIVE: CASE EVENT DATE: 20210607
